FAERS Safety Report 19662454 (Version 2)
Quarter: 2021Q3

REPORT INFORMATION
  Report Type: Spontaneous
  Country: JP (occurrence: JP)
  Receive Date: 20210805
  Receipt Date: 20210908
  Transmission Date: 20211014
  Serious: Yes (Death, Other)
  Sender: FDA-Public Use
  Company Number: JP-BRISTOL-MYERS SQUIBB COMPANY-BMS-2021-076739

PATIENT
  Age: 77 Year
  Sex: Male

DRUGS (2)
  1. OPDIVO [Suspect]
     Active Substance: NIVOLUMAB
     Dosage: 480 MILLIGRAM
     Route: 041
     Dates: start: 20201111, end: 20210203
  2. OPDIVO [Suspect]
     Active Substance: NIVOLUMAB
     Indication: OESOPHAGEAL CARCINOMA
     Dosage: 240 MILLIGRAM
     Route: 041
     Dates: start: 20200901

REACTIONS (3)
  - Spinal compression fracture [Unknown]
  - Malignant neoplasm progression [Fatal]
  - Decreased appetite [Unknown]

NARRATIVE: CASE EVENT DATE: 20210208
